FAERS Safety Report 5334379-3 (Version None)
Quarter: 2007Q2

REPORT INFORMATION
  Report Type: 
  Country: None (occurrence: None)
  Receive Date: 20070525
  Receipt Date: 20070522
  Transmission Date: 20071010
  Serious: Yes (Death, Life-Threatening)
  Sender: FDA-Public Use
  Company Number: PHRM2007FR01476

PATIENT
  Age: 80 Year
  Sex: Female
  Weight: 60 kg

DRUGS (6)
  1. FEMARA [Suspect]
     Indication: BREAST CANCER
     Dosage: 2.5 MG, QD
     Route: 048
     Dates: start: 20070307, end: 20070318
  2. SPECIAFOLDINE [Concomitant]
     Dosage: 1 DF, QD
     Route: 048
     Dates: end: 20070318
  3. INIPOMP [Concomitant]
     Route: 048
  4. LOVENOX [Concomitant]
     Dosage: 1 DF, QD
     Route: 058
  5. COVERSYL                                /BEL/ [Concomitant]
     Indication: ACUTE MYOCARDIAL INFARCTION
     Dosage: 2 MG, QD
     Route: 048
     Dates: end: 20070318
  6. ZOCOR [Concomitant]
     Indication: ACUTE MYOCARDIAL INFARCTION
     Dosage: 20 MG DAILY
     Route: 048
     Dates: end: 20070318

REACTIONS (4)
  - COMA [None]
  - HYPONATRAEMIA [None]
  - LUNG DISORDER [None]
  - LUNG INFECTION PSEUDOMONAL [None]
